FAERS Safety Report 23195352 (Version 1)
Quarter: 2023Q4

REPORT INFORMATION
  Report Type: Spontaneous
  Country: US (occurrence: US)
  Receive Date: 20231117
  Receipt Date: 20231117
  Transmission Date: 20240110
  Serious: Yes (Hospitalization, Other)
  Sender: FDA-Public Use
  Company Number: US-ALKEM LABORATORIES LIMITED-US-ALKEM-2023-06066

PATIENT
  Age: 27 Year
  Sex: Male

DRUGS (117)
  1. OLANZAPINE [Suspect]
     Active Substance: OLANZAPINE
     Indication: Schizoaffective disorder
     Dosage: UNK
     Route: 065
  2. LURASIDONE [Suspect]
     Active Substance: LURASIDONE
     Indication: Schizoaffective disorder
     Dosage: UNK
     Route: 065
  3. CLOZAPINE [Suspect]
     Active Substance: CLOZAPINE
     Indication: Schizoaffective disorder
     Dosage: 25 MILLIGRAM, (ON DAY 1)
     Route: 065
  4. CLOZAPINE [Suspect]
     Active Substance: CLOZAPINE
     Dosage: 50 MILLIGRAM, QD (ON DAY 5)
     Route: 065
  5. CLOZAPINE [Suspect]
     Active Substance: CLOZAPINE
     Dosage: 100 MILLIGRAM, QD (ON DAY 7)
     Route: 065
  6. CLOZAPINE [Suspect]
     Active Substance: CLOZAPINE
     Dosage: 125 MILLIGRAM, QD (ON DAY 11)
     Route: 065
  7. CLOZAPINE [Suspect]
     Active Substance: CLOZAPINE
     Dosage: 150 MILLIGRAM, QD (ON DAY 12)
     Route: 065
  8. CLOZAPINE [Suspect]
     Active Substance: CLOZAPINE
     Dosage: 150 MILLIGRAM, QD (ON DAY 14)
     Route: 065
  9. CLOZAPINE [Suspect]
     Active Substance: CLOZAPINE
     Dosage: 200 MILLIGRAM, QD (ON DAY 15)
     Route: 065
  10. CLOZAPINE [Suspect]
     Active Substance: CLOZAPINE
     Dosage: 50 MILLIGRAM, QD (ON DAY 16)
     Route: 065
  11. CLOZAPINE [Suspect]
     Active Substance: CLOZAPINE
     Dosage: 12.5 MILLIGRAM, QD (ON DAY 149)
     Route: 065
  12. CLOZAPINE [Suspect]
     Active Substance: CLOZAPINE
     Dosage: 12.5 MILLIGRAM, QD (ON DAY 151)
     Route: 065
  13. CLOZAPINE [Suspect]
     Active Substance: CLOZAPINE
     Dosage: 12.5 MILLIGRAM, QD (ON DAY 154)
     Route: 065
  14. CLOZAPINE [Suspect]
     Active Substance: CLOZAPINE
     Dosage: 12.5 MILLIGRAM, QD (ON DAY 155)
     Route: 065
  15. CLOZAPINE [Suspect]
     Active Substance: CLOZAPINE
     Dosage: 12.5 MILLIGRAM, QD (ON DAY 157)
     Route: 065
  16. CLOZAPINE [Suspect]
     Active Substance: CLOZAPINE
     Dosage: 12.5 MILLIGRAM, QD (ON DAY 158)
     Route: 065
  17. CLOZAPINE [Suspect]
     Active Substance: CLOZAPINE
     Dosage: 12.5 MILLIGRAM, QD (ON DAY 161)
     Route: 065
  18. RISPERIDONE [Suspect]
     Active Substance: RISPERIDONE
     Indication: Schizoaffective disorder
     Dosage: 1 MILLIGRAM, QD (ON DAY 17)
     Route: 065
  19. RISPERIDONE [Suspect]
     Active Substance: RISPERIDONE
     Dosage: 2 MILLIGRAM, QD (ON DAY 21)
     Route: 065
  20. RISPERIDONE [Suspect]
     Active Substance: RISPERIDONE
     Dosage: 4 MILLIGRAM, QD (ON DAY 23)
     Route: 065
  21. RISPERIDONE [Suspect]
     Active Substance: RISPERIDONE
     Dosage: 2 MILLIGRAM, QD (ON DAY 49)
     Route: 065
  22. BENZTROPINE [Concomitant]
     Active Substance: BENZTROPINE
     Indication: Schizoaffective disorder
     Dosage: 1 MILLIGRAM, QD (ON DAY 1)
     Route: 065
  23. BENZTROPINE [Concomitant]
     Active Substance: BENZTROPINE
     Dosage: 1 MILLIGRAM, QD (ON DAY 5)
     Route: 065
  24. BENZTROPINE [Concomitant]
     Active Substance: BENZTROPINE
     Dosage: 1 MILLIGRAM, QD (ON DAY 7)
     Route: 065
  25. BENZTROPINE [Concomitant]
     Active Substance: BENZTROPINE
     Dosage: 1 MILLIGRAM, QD (ON DAY 11)
     Route: 065
  26. BENZTROPINE [Concomitant]
     Active Substance: BENZTROPINE
     Dosage: 1 MILLIGRAM, QD (ON DAY 12)
     Route: 065
  27. BENZTROPINE [Concomitant]
     Active Substance: BENZTROPINE
     Dosage: 1 MILLIGRAM, QD (ON DAY 14)
     Route: 065
  28. BENZTROPINE [Concomitant]
     Active Substance: BENZTROPINE
     Dosage: 1 MILLIGRAM, QD (ON DAY 15)
     Route: 065
  29. BENZTROPINE [Concomitant]
     Active Substance: BENZTROPINE
     Dosage: 1 MILLIGRAM, QD (ON DAY 16)
     Route: 065
  30. BENZTROPINE [Concomitant]
     Active Substance: BENZTROPINE
     Dosage: 1 MILLIGRAM, QD (ON DAY 17)
     Route: 065
  31. BENZTROPINE [Concomitant]
     Active Substance: BENZTROPINE
     Dosage: 1 MILLIGRAM, QD (ON DAY 21)
     Route: 065
  32. BENZTROPINE [Concomitant]
     Active Substance: BENZTROPINE
     Dosage: 1 MILLIGRAM, QD (ON DAY 23)
     Route: 065
  33. BENZTROPINE [Concomitant]
     Active Substance: BENZTROPINE
     Dosage: 1 MILLIGRAM, QD (ON DAY 49)
     Route: 065
  34. BENZTROPINE [Concomitant]
     Active Substance: BENZTROPINE
     Dosage: 1 MILLIGRAM, QD (ON DAY 148)
     Route: 065
  35. BENZTROPINE [Concomitant]
     Active Substance: BENZTROPINE
     Dosage: 1 MILLIGRAM, QD (ON DAY 149)
     Route: 065
  36. BENZTROPINE [Concomitant]
     Active Substance: BENZTROPINE
     Dosage: 1 MILLIGRAM, QD (ON DAY 151)
     Route: 065
  37. BENZTROPINE [Concomitant]
     Active Substance: BENZTROPINE
     Dosage: 1 MILLIGRAM, QD (ON DAY 154)
     Route: 065
  38. BENZTROPINE [Concomitant]
     Active Substance: BENZTROPINE
     Dosage: 1 MILLIGRAM, QD (ON DAY 155)
     Route: 065
  39. BENZTROPINE [Concomitant]
     Active Substance: BENZTROPINE
     Dosage: 1 MILLIGRAM, QD (ON DAY 157)
     Route: 065
  40. BENZTROPINE [Concomitant]
     Active Substance: BENZTROPINE
     Dosage: 1 MILLIGRAM, QD (ON DAY 158)
     Route: 065
  41. BENZTROPINE [Concomitant]
     Active Substance: BENZTROPINE
     Dosage: 1 MILLIGRAM, QD (ON DAY 161)
     Route: 065
  42. BENZTROPINE [Concomitant]
     Active Substance: BENZTROPINE
     Dosage: 1 MILLIGRAM, QD (ON DAY 162)
     Route: 065
  43. BENZTROPINE [Concomitant]
     Active Substance: BENZTROPINE
     Dosage: 1 MILLIGRAM, QD (ON DAY 164)
     Route: 065
  44. BENZTROPINE [Concomitant]
     Active Substance: BENZTROPINE
     Dosage: 1 MILLIGRAM, QD (ON DAY 165)
     Route: 065
  45. CHLORPROMAZINE [Concomitant]
     Active Substance: CHLORPROMAZINE
     Indication: Schizoaffective disorder
     Dosage: 100 MILLIGRAM, QD (ON DAY 1)
     Route: 030
  46. CHLORPROMAZINE [Concomitant]
     Active Substance: CHLORPROMAZINE
     Indication: Aggression
  47. CHLORPROMAZINE [Concomitant]
     Active Substance: CHLORPROMAZINE
     Indication: Hypersexuality
  48. DIPHENHYDRAMINE [Concomitant]
     Active Substance: DIPHENHYDRAMINE
     Indication: Schizoaffective disorder
     Dosage: 100 MILLIGRAM, QD (ON DAY 1)
     Route: 030
  49. DIPHENHYDRAMINE [Concomitant]
     Active Substance: DIPHENHYDRAMINE
     Indication: Aggression
     Dosage: 100 MILLIGRAM, QD (ON DAY 17)
     Route: 065
  50. DIPHENHYDRAMINE [Concomitant]
     Active Substance: DIPHENHYDRAMINE
     Indication: Hypersexuality
     Dosage: 100 MILLIGRAM, QD (ON DAY 157)
     Route: 065
  51. DIPHENHYDRAMINE [Concomitant]
     Active Substance: DIPHENHYDRAMINE
     Dosage: 100 MILLIGRAM, QD (ON DAY 158)
     Route: 065
  52. HALOPERIDOL [Concomitant]
     Active Substance: HALOPERIDOL
     Indication: Schizoaffective disorder
     Dosage: 20 MILLIGRAM, QD (ON DAY 148)
     Route: 065
  53. HALOPERIDOL [Concomitant]
     Active Substance: HALOPERIDOL
     Dosage: 20 MILLIGRAM, QD (ON DAY 149)
     Route: 065
  54. HALOPERIDOL [Concomitant]
     Active Substance: HALOPERIDOL
     Dosage: 20 MILLIGRAM, QD (ON DAY 151)
     Route: 065
  55. HALOPERIDOL [Concomitant]
     Active Substance: HALOPERIDOL
     Dosage: 20 MILLIGRAM, QD (ON DAY 154)
     Route: 065
  56. HALOPERIDOL [Concomitant]
     Active Substance: HALOPERIDOL
     Dosage: 20 MILLIGRAM, QD (ON DAY 155)
     Route: 065
  57. HALOPERIDOL [Concomitant]
     Active Substance: HALOPERIDOL
     Dosage: 25 MILLIGRAM, QD (ON DAY 157)
     Route: 065
  58. HALOPERIDOL [Concomitant]
     Active Substance: HALOPERIDOL
     Dosage: 25 MILLIGRAM, QD (ON DAY 158)
     Route: 065
  59. HALOPERIDOL [Concomitant]
     Active Substance: HALOPERIDOL
     Dosage: 20 MILLIGRAM, QD (ON DAY 161)
     Route: 065
  60. HALOPERIDOL [Concomitant]
     Active Substance: HALOPERIDOL
     Dosage: 20 MILLIGRAM, QD (ON DAY 162)
     Route: 065
  61. HALOPERIDOL [Concomitant]
     Active Substance: HALOPERIDOL
     Dosage: 20 MILLIGRAM, QD (ON DAY 164)
     Route: 065
  62. HALOPERIDOL [Concomitant]
     Active Substance: HALOPERIDOL
     Dosage: 20 MILLIGRAM, QD (ON DAY 165)
     Route: 065
  63. LITHIUM [Concomitant]
     Active Substance: LITHIUM
     Indication: Schizoaffective disorder
     Dosage: 900 MILLIGRAM, QD (ON DAY 1)
     Route: 065
  64. LITHIUM [Concomitant]
     Active Substance: LITHIUM
     Dosage: 900 MILLIGRAM, QD (ON DAY 5)
     Route: 065
  65. LITHIUM [Concomitant]
     Active Substance: LITHIUM
     Dosage: 900 MILLIGRAM, QD (ON DAY 7)
     Route: 065
  66. LITHIUM [Concomitant]
     Active Substance: LITHIUM
     Dosage: 900 MILLIGRAM, QD (ON DAY 11)
     Route: 065
  67. LITHIUM [Concomitant]
     Active Substance: LITHIUM
     Dosage: 900 MILLIGRAM, QD (ON DAY 12)
     Route: 065
  68. LITHIUM [Concomitant]
     Active Substance: LITHIUM
     Dosage: 900 MILLIGRAM, QD (ON DAY 14)
     Route: 065
  69. LITHIUM [Concomitant]
     Active Substance: LITHIUM
     Dosage: 900 MILLIGRAM, QD (ON DAY 15)
     Route: 065
  70. LITHIUM [Concomitant]
     Active Substance: LITHIUM
     Dosage: 900 MILLIGRAM, QD (ON DAY 16)
     Route: 065
  71. LITHIUM [Concomitant]
     Active Substance: LITHIUM
     Dosage: 450 MILLIGRAM, QD (ON DAY 17)
     Route: 065
  72. LITHIUM [Concomitant]
     Active Substance: LITHIUM
     Dosage: 900 MILLIGRAM, QD (ON DAY 21)
     Route: 065
  73. LITHIUM [Concomitant]
     Active Substance: LITHIUM
     Dosage: 900 MILLIGRAM, QD (ON DAY 23)
     Route: 065
  74. LITHIUM [Concomitant]
     Active Substance: LITHIUM
     Dosage: 900 MILLIGRAM, QD (ON DAY 49)
     Route: 065
  75. LITHIUM [Concomitant]
     Active Substance: LITHIUM
     Dosage: 900 MILLIGRAM, QD (ON DAY 148)
     Route: 065
  76. LITHIUM [Concomitant]
     Active Substance: LITHIUM
     Dosage: 900 MILLIGRAM, QD (ON DAY 149)
     Route: 065
  77. LITHIUM [Concomitant]
     Active Substance: LITHIUM
     Dosage: 900 MILLIGRAM, QD (ON DAY 151)
     Route: 065
  78. LITHIUM [Concomitant]
     Active Substance: LITHIUM
     Dosage: 900 MILLIGRAM, QD (ON DAY 154)
     Route: 065
  79. LITHIUM [Concomitant]
     Active Substance: LITHIUM
     Dosage: 900 MILLIGRAM, QD (ON DAY 155)
     Route: 065
  80. LITHIUM [Concomitant]
     Active Substance: LITHIUM
     Dosage: 900 MILLIGRAM, QD (ON DAY 157)
     Route: 065
  81. LITHIUM [Concomitant]
     Active Substance: LITHIUM
     Dosage: 900 MILLIGRAM, QD (ON DAY 158)
     Route: 065
  82. LITHIUM [Concomitant]
     Active Substance: LITHIUM
     Dosage: 900 MILLIGRAM, QD (ON DAY 161)
     Route: 065
  83. LITHIUM [Concomitant]
     Active Substance: LITHIUM
     Dosage: 900 MILLIGRAM, QD (ON DAY 162)
     Route: 065
  84. LITHIUM [Concomitant]
     Active Substance: LITHIUM
     Dosage: 900 MILLIGRAM, QD (ON DAY 164)
     Route: 065
  85. LITHIUM [Concomitant]
     Active Substance: LITHIUM
     Dosage: 900 MILLIGRAM, QD (ON DAY 165)
     Route: 065
  86. LORAZEPAM [Concomitant]
     Active Substance: LORAZEPAM
     Indication: Schizoaffective disorder
     Dosage: 4.5 MILLIGRAM, QD (ON DAY 23)
     Route: 065
  87. LORAZEPAM [Concomitant]
     Active Substance: LORAZEPAM
     Dosage: 1.5 MILLIGRAM, QD (ON DAY 49)
     Route: 065
  88. LORAZEPAM [Concomitant]
     Active Substance: LORAZEPAM
     Dosage: 2 MILLIGRAM, QD (ON DAY 148)
     Route: 065
  89. LORAZEPAM [Concomitant]
     Active Substance: LORAZEPAM
     Dosage: 1 MILLIGRAM, QD (ON DAY 149)
     Route: 065
  90. LORAZEPAM [Concomitant]
     Active Substance: LORAZEPAM
     Dosage: 1 MILLIGRAM, QD (ON DAY 151)
     Route: 065
  91. LORAZEPAM [Concomitant]
     Active Substance: LORAZEPAM
     Dosage: 1 MILLIGRAM, QD (ON DAY 154)
     Route: 065
  92. LORAZEPAM [Concomitant]
     Active Substance: LORAZEPAM
     Dosage: 1 MILLIGRAM, QD (ON DAY 155)
     Route: 065
  93. LORAZEPAM [Concomitant]
     Active Substance: LORAZEPAM
     Dosage: 1 MILLIGRAM, QD (ON DAY 157)
     Route: 065
  94. LORAZEPAM [Concomitant]
     Active Substance: LORAZEPAM
     Dosage: 1 MILLIGRAM, QD (ON DAY 158)
     Route: 065
  95. LORAZEPAM [Concomitant]
     Active Substance: LORAZEPAM
     Dosage: 1 MILLIGRAM, QD (ON DAY 161)
     Route: 065
  96. LORAZEPAM [Concomitant]
     Active Substance: LORAZEPAM
     Dosage: 1 MILLIGRAM, QD (ON DAY 162)
     Route: 065
  97. LORAZEPAM [Concomitant]
     Active Substance: LORAZEPAM
     Dosage: 1 MILLIGRAM, QD (ON DAY 164)
     Route: 065
  98. LORAZEPAM [Concomitant]
     Active Substance: LORAZEPAM
     Dosage: 1 MILLIGRAM, QD (ON DAY 165)
     Route: 065
  99. NALTREXONE [Concomitant]
     Active Substance: NALTREXONE
     Indication: Schizoaffective disorder
     Dosage: 100 MILLIGRAM, QD (ON DAY 49)
     Route: 065
  100. PALIPERIDONE [Concomitant]
     Active Substance: PALIPERIDONE
     Indication: Schizoaffective disorder
     Dosage: 234 MILLIGRAM, QD (ON DAY 17)
     Route: 030
  101. QUETIAPINE [Concomitant]
     Active Substance: QUETIAPINE
     Indication: Schizoaffective disorder
     Dosage: 800 MILLIGRAM, QD (ON DAY 1)
     Route: 065
  102. QUETIAPINE [Concomitant]
     Active Substance: QUETIAPINE
     Dosage: 800 MILLIGRAM, QD (ON DAY 5)
     Route: 065
  103. QUETIAPINE [Concomitant]
     Active Substance: QUETIAPINE
     Dosage: 800 MILLIGRAM, QD (ON DAY 7)
     Route: 065
  104. QUETIAPINE [Concomitant]
     Active Substance: QUETIAPINE
     Dosage: 800 MILLIGRAM, QD (ON DAY 11)
     Route: 065
  105. QUETIAPINE [Concomitant]
     Active Substance: QUETIAPINE
     Dosage: 800 MILLIGRAM, QD (ON DAY 12)
     Route: 065
  106. QUETIAPINE [Concomitant]
     Active Substance: QUETIAPINE
     Dosage: 800 MILLIGRAM, QD (ON DAY 14)
     Route: 065
  107. QUETIAPINE [Concomitant]
     Active Substance: QUETIAPINE
     Dosage: 800 MILLIGRAM, QD (ON DAY 15)
     Route: 065
  108. QUETIAPINE [Concomitant]
     Active Substance: QUETIAPINE
     Dosage: 800 MILLIGRAM, QD (ON DAY 16)
     Route: 065
  109. QUETIAPINE [Concomitant]
     Active Substance: QUETIAPINE
     Dosage: 400 MILLIGRAM, QD (ON DAY 17)
     Route: 065
  110. SERTRALINE [Concomitant]
     Active Substance: SERTRALINE HYDROCHLORIDE
     Indication: Schizoaffective disorder
     Dosage: UNK
     Route: 065
  111. ZIPRASIDONE [Concomitant]
     Active Substance: ZIPRASIDONE
     Indication: Schizoaffective disorder
     Dosage: 80 MILLIGRAM, QD (ON DAY 1)
     Route: 065
  112. ZIPRASIDONE [Concomitant]
     Active Substance: ZIPRASIDONE
     Dosage: 80 MILLIGRAM, QD (ON DAY 5)
     Route: 065
  113. ZIPRASIDONE [Concomitant]
     Active Substance: ZIPRASIDONE
     Dosage: 80 MILLIGRAM, QD (ON DAY 7)
     Route: 065
  114. ZIPRASIDONE [Concomitant]
     Active Substance: ZIPRASIDONE
     Dosage: 80 MILLIGRAM, QD (ON DAY 11)
     Route: 065
  115. ZIPRASIDONE [Concomitant]
     Active Substance: ZIPRASIDONE
     Dosage: 80 MILLIGRAM, QD (ON DAY 12)
     Route: 065
  116. ZIPRASIDONE [Concomitant]
     Active Substance: ZIPRASIDONE
     Dosage: 80 MILLIGRAM, QD (ON DAY 14)
     Route: 065
  117. ZIPRASIDONE [Concomitant]
     Active Substance: ZIPRASIDONE
     Dosage: 80 MILLIGRAM, QD (ON DAY 15)
     Route: 065

REACTIONS (7)
  - Drug reaction with eosinophilia and systemic symptoms [Unknown]
  - Eosinophilia [Unknown]
  - Myocarditis [Unknown]
  - Pericarditis [Unknown]
  - Drug level increased [Unknown]
  - Overdose [Unknown]
  - Therapy non-responder [Unknown]
